FAERS Safety Report 7261583-X (Version None)
Quarter: 2011Q1

REPORT INFORMATION
  Report Type: 
  Country: None (occurrence: None)
  Receive Date: 20110130
  Receipt Date: 20101029
  Transmission Date: 20110831
  Serious: No
  Sender: FDA-Public Use
  Company Number: US-ABBOTT-10P-163-0682813-00

PATIENT
  Sex: Female
  Weight: 45.4 kg

DRUGS (4)
  1. HUMIRA [Suspect]
     Indication: CROHN'S DISEASE
     Dates: start: 20100727
  2. LISINOPRIL [Concomitant]
     Indication: HYPERTENSION
  3. ZOFRAN [Concomitant]
     Indication: NAUSEA
  4. FIORICET W/ CODEINE [Concomitant]
     Indication: HEADACHE

REACTIONS (6)
  - CONSTIPATION [None]
  - ASTHENIA [None]
  - FATIGUE [None]
  - HEADACHE [None]
  - NODULE [None]
  - PAIN [None]
